FAERS Safety Report 5604204-1 (Version None)
Quarter: 2008Q1

REPORT INFORMATION
  Report Type: 
  Country: None (occurrence: None)
  Receive Date: 20080128
  Receipt Date: 20080124
  Transmission Date: 20080703
  Serious: Yes (Death, Hospitalization)
  Sender: FDA-Public Use
  Company Number: FR-NOVOPROD-269582

PATIENT
  Age: 85 Year
  Sex: Female
  Weight: 90 kg

DRUGS (7)
  1. NOVOLOG MIX 70/30 [Suspect]
     Indication: TYPE 2 DIABETES MELLITUS
     Dosage: 70 IU, QD (50-0-20)
     Route: 058
     Dates: start: 20041020, end: 20071116
  2. PROPRANOLOL [Concomitant]
     Dosage: 40 MG, QD
  3. COTAREG [Concomitant]
     Dosage: 160 MG, QD
  4. FUROSEMIDE [Concomitant]
     Dosage: 40 MG, QD
  5. OGAST [Concomitant]
     Dosage: 30 MG, QD
  6. DIFFU-K [Concomitant]
  7. NAFTIDROFURYL [Concomitant]

REACTIONS (1)
  - CELLULITIS [None]
